FAERS Safety Report 4398801-1 (Version None)
Quarter: 2004Q3

REPORT INFORMATION
  Report Type: 
  Country: None (occurrence: None)
  Receive Date: 20040712
  Receipt Date: 20040701
  Transmission Date: 20050211
  Serious: Yes (Hospitalization)
  Sender: FDA-Public Use
  Company Number: 2004-BP-05242RO

PATIENT
  Age: 62 Year
  Sex: Male
  Weight: 79.4 kg

DRUGS (7)
  1. PREDNISONE TAB [Suspect]
     Indication: MANTLE CELL LYMPHOMA
     Dosage: 100 MG/DAY FOR 5 DAYS (R-CHOP 1 CYCLE EVERY 28 DAYS)
  2. GENASENSE [Suspect]
     Indication: MANTLE CELL LYMPHOMA
     Dosage: 3 MG/KG/DAY (7 DAY CYCLE EVERY 28 DAYS) IV
     Route: 042
     Dates: start: 20030108
  3. RITUXIMAB (RITUXIMAB) [Suspect]
     Indication: MANTLE CELL LYMPHOMA
     Dosage: 750 MG (R-CHOP 1 CYCLE EVERY 28 DAYS) IV
     Route: 042
  4. CYCLOPHOSPHAMIDE [Suspect]
     Indication: MANTLE CELL LYMPHOMA
     Dosage: 1500 MG (R-CHOP 1 CYCLE EVERY 28 DAYS) IV
     Route: 042
  5. DOXORUBICIN HCL [Suspect]
     Indication: MANTLE CELL LYMPHOMA
     Dosage: 100 MG (R-CHOP 1 CYCLE EVERY 28 DAYS) IV
     Route: 042
  6. VINCRISTINE [Suspect]
     Indication: MANTLE CELL LYMPHOMA
     Dosage: 2 MG (R-CHOP 1 CYCLE EVERY 28 DAYS) IV
     Route: 042
  7. SIMVASTATIN [Concomitant]

REACTIONS (4)
  - COUGH [None]
  - DYSPNOEA [None]
  - FEBRILE NEUTROPENIA [None]
  - ORAL CANDIDIASIS [None]
